FAERS Safety Report 16782180 (Version 2)
Quarter: 2019Q4

REPORT INFORMATION
  Report Type: Report from Study
  Country: US (occurrence: US)
  Receive Date: 20190906
  Receipt Date: 20191001
  Transmission Date: 20200122
  Serious: Yes (Hospitalization)
  Sender: FDA-Public Use
  Company Number: US-BIOGEN-2019BI00779551

PATIENT
  Sex: Female

DRUGS (2)
  1. TECFIDERA [Suspect]
     Active Substance: DIMETHYL FUMARATE
     Indication: MULTIPLE SCLEROSIS
     Route: 065
     Dates: start: 20190805
  2. TECFIDERA [Suspect]
     Active Substance: DIMETHYL FUMARATE
     Route: 048
     Dates: start: 20190808

REACTIONS (13)
  - Paraesthesia [Unknown]
  - Vomiting [Unknown]
  - Dehydration [Unknown]
  - Eating disorder [Unknown]
  - Akinesia [Unknown]
  - Nausea [Unknown]
  - Product dose omission [Unknown]
  - Diplopia [Unknown]
  - Asthenia [Unknown]
  - Rash pruritic [Unknown]
  - Paraesthesia oral [Unknown]
  - Hypoaesthesia [Unknown]
  - Hemianaesthesia [Unknown]
